FAERS Safety Report 19720597 (Version 8)
Quarter: 2024Q1

REPORT INFORMATION
  Report Type: Spontaneous
  Country: DE (occurrence: DE)
  Receive Date: 20210819
  Receipt Date: 20240305
  Transmission Date: 20240410
  Serious: Yes (Life-Threatening, Hospitalization, Other)
  Sender: FDA-Public Use
  Company Number: None

PATIENT
  Age: 41 Year
  Sex: Male
  Weight: 75 kg

DRUGS (1)
  1. LEVOFLOXACIN [Suspect]
     Active Substance: LEVOFLOXACIN
     Indication: Chronic sinusitis
     Dosage: 1-0-1, 500 MG
     Route: 048
     Dates: start: 20170916, end: 20170927

REACTIONS (36)
  - Myopathy [Not Recovered/Not Resolved]
  - Depression [Not Recovered/Not Resolved]
  - Gastrointestinal disorder [Unknown]
  - Impaired work ability [Unknown]
  - Nervous system disorder [Not Recovered/Not Resolved]
  - Food intolerance [Unknown]
  - Medication error [Unknown]
  - Loss of personal independence in daily activities [Unknown]
  - Early retirement [Unknown]
  - Disability [Recovered/Resolved with Sequelae]
  - Impaired gastric emptying [Unknown]
  - Malnutrition [Unknown]
  - Hormone level abnormal [Unknown]
  - Neuropathy peripheral [Unknown]
  - Endocrine disorder [Unknown]
  - Chronic fatigue syndrome [Not Recovered/Not Resolved]
  - Mastication disorder [Not Recovered/Not Resolved]
  - Urine abnormality [Not Recovered/Not Resolved]
  - Myalgia [Not Recovered/Not Resolved]
  - Mitochondrial toxicity [Not Recovered/Not Resolved]
  - Dysphagia [Not Recovered/Not Resolved]
  - Polyneuropathy [Not Recovered/Not Resolved]
  - Weight increased [Not Recovered/Not Resolved]
  - Breast disorder male [Not Recovered/Not Resolved]
  - Testicular pain [Not Recovered/Not Resolved]
  - Visual impairment [Not Recovered/Not Resolved]
  - Muscular weakness [Not Recovered/Not Resolved]
  - Suicidal ideation [Not Recovered/Not Resolved]
  - Disturbance in attention [Not Recovered/Not Resolved]
  - Oedema [Not Recovered/Not Resolved]
  - Connective tissue disorder [Not Recovered/Not Resolved]
  - Chronic fatigue syndrome [Not Recovered/Not Resolved]
  - Anxiety disorder [Unknown]
  - Collagen disorder [Not Recovered/Not Resolved]
  - Dysbiosis [Unknown]
  - Infection parasitic [Unknown]

NARRATIVE: CASE EVENT DATE: 20160901
